FAERS Safety Report 6859141-1 (Version None)
Quarter: 2010Q3

REPORT INFORMATION
  Report Type: 
  Country: None (occurrence: None)
  Receive Date: 20100719
  Receipt Date: 20080222
  Transmission Date: 20110219
  Serious: No
  Sender: FDA-Public Use
  Company Number: US-PFIZER INC-2008018841

PATIENT
  Sex: Male
  Weight: 90.7 kg

DRUGS (4)
  1. CHANTIX [Suspect]
     Indication: SMOKING CESSATION THERAPY
     Route: 048
     Dates: start: 20080117
  2. XANAX [Concomitant]
     Route: 048
  3. ZOLOFT [Concomitant]
     Route: 048
  4. OXYCODONE HCL [Concomitant]
     Route: 048

REACTIONS (8)
  - DYSPNOEA [None]
  - DYSSTASIA [None]
  - FATIGUE [None]
  - FEELING ABNORMAL [None]
  - MUSCLE STRAIN [None]
  - MYALGIA [None]
  - PAIN [None]
  - UNEVALUABLE EVENT [None]
